FAERS Safety Report 5507691-2 (Version None)
Quarter: 2007Q4

REPORT INFORMATION
  Report Type: 
  Country: None (occurrence: None)
  Receive Date: 20071106
  Receipt Date: 20071102
  Transmission Date: 20080405
  Serious: Yes (Hospitalization)
  Sender: FDA-Public Use
  Company Number: B0492607A

PATIENT
  Age: 53 Year
  Sex: Male
  Weight: 64 kg

DRUGS (12)
  1. ARIXTRA [Suspect]
     Indication: THROMBOSIS PROPHYLAXIS
     Dosage: 2.5MG PER DAY
     Route: 058
     Dates: start: 20070921, end: 20070925
  2. MOBIC [Suspect]
     Indication: ANALGESIA
     Dosage: 1.5MG PER DAY
     Route: 048
  3. BLOPRESS [Concomitant]
     Indication: HYPERTENSION
     Dosage: 8MG PER DAY
     Route: 048
  4. NIFEDIPINE [Concomitant]
     Indication: HYPERTENSION
     Dosage: 20MG PER DAY
     Route: 048
  5. UNKNOWN DRUG [Concomitant]
     Indication: POLLAKIURIA
     Dosage: 10MG PER DAY
     Route: 048
     Dates: start: 20070925
  6. PANTOSIN [Concomitant]
     Indication: CONSTIPATION
     Dosage: 2G PER DAY
     Route: 048
  7. MAGNESIUM OXIDE [Concomitant]
     Indication: CONSTIPATION
     Dosage: 1G PER DAY
     Route: 048
  8. VESICARE [Concomitant]
     Indication: POLLAKIURIA
     Dosage: 2.5MG PER DAY
     Route: 048
  9. FERROMIA [Concomitant]
     Dosage: 100MG PER DAY
     Route: 048
     Dates: start: 20070806
  10. ZOLPIDEM [Concomitant]
     Indication: INSOMNIA
     Dosage: 5MG PER DAY
     Route: 048
  11. FLOMOX [Concomitant]
     Indication: INFECTION PROPHYLAXIS
     Dosage: 300MG PER DAY
     Route: 048
     Dates: start: 20070924, end: 20070928
  12. CEFAMEZIN [Concomitant]
     Indication: INFECTION PROPHYLAXIS
     Dosage: 2G PER DAY
     Route: 042
     Dates: start: 20070920, end: 20070923

REACTIONS (2)
  - GASTRIC ULCER [None]
  - MELAENA [None]
